FAERS Safety Report 4277364-5 (Version None)
Quarter: 2004Q1

REPORT INFORMATION
  Report Type: 
  Country: None (occurrence: None)
  Receive Date: 20040122
  Receipt Date: 20040119
  Transmission Date: 20041129
  Serious: Yes (Disabling)
  Sender: FDA-Public Use
  Company Number: PHRM2004FR00580

PATIENT
  Age: 24 Hour
  Sex: Male
  Weight: 3043 kg

DRUGS (2)
  1. TRILEPTAL [Suspect]
     Route: 064
  2. IMOVANE [Concomitant]
     Route: 064

REACTIONS (3)
  - CAESAREAN SECTION [None]
  - DRUG EXPOSURE DURING PREGNANCY [None]
  - SPINE MALFORMATION [None]
